FAERS Safety Report 23425209 (Version 1)
Quarter: 2024Q1

REPORT INFORMATION
  Report Type: Spontaneous
  Country: US (occurrence: US)
  Receive Date: 20240121
  Receipt Date: 20240121
  Transmission Date: 20240409
  Serious: Yes (Hospitalization)
  Sender: FDA-Public Use
  Company Number: US-NOVOPROD-1155963

PATIENT
  Age: 69 Year
  Sex: Female

DRUGS (1)
  1. OZEMPIC [Suspect]
     Active Substance: SEMAGLUTIDE
     Indication: Diabetes mellitus
     Dosage: UNK
     Dates: start: 202303

REACTIONS (2)
  - Fall [Not Recovered/Not Resolved]
  - Spinal compression fracture [Not Recovered/Not Resolved]

NARRATIVE: CASE EVENT DATE: 20231201
